FAERS Safety Report 20135073 (Version 1)
Quarter: 2021Q4

REPORT INFORMATION
  Report Type: Spontaneous
  Country: US (occurrence: None)
  Receive Date: 20211130
  Receipt Date: 20211130
  Transmission Date: 20220303
  Serious: Yes (Hospitalization)
  Sender: FDA-Public Use
  Company Number: None

PATIENT
  Age: 63 Year
  Sex: Female
  Weight: 38 kg

DRUGS (6)
  1. TECARTUS [Suspect]
     Active Substance: BREXUCABTAGENE AUTOLEUCEL
     Indication: Mantle cell lymphoma
     Dosage: OTHER FREQUENCY : ONCE;?
     Route: 042
     Dates: start: 20210802, end: 20210802
  2. acyclovir (Zovirax) [Concomitant]
     Dates: start: 20210801, end: 20211130
  3. KEPPRA [Concomitant]
     Active Substance: LEVETIRACETAM
     Dates: start: 20210801, end: 20211007
  4. filgrastim-sndz (Zarxio) 480 mcg Syrg [Concomitant]
     Dates: start: 20210802, end: 20211126
  5. anakinra (Kineret) subcutaneous injection [Concomitant]
     Dates: start: 20210809, end: 20210812
  6. DECADRON [Concomitant]
     Active Substance: DEXAMETHASONE
     Dates: start: 20210806, end: 20210812

REACTIONS (2)
  - Cytokine release syndrome [None]
  - Immune effector cell-associated neurotoxicity syndrome [None]

NARRATIVE: CASE EVENT DATE: 20210801
